FAERS Safety Report 11046471 (Version 1)
Quarter: 2015Q2

REPORT INFORMATION
  Report Type: Spontaneous
  Country: US (occurrence: US)
  Receive Date: 20150420
  Receipt Date: 20150420
  Transmission Date: 20150821
  Serious: Yes (Other)
  Sender: FDA-Public Use
  Company Number: US-TEVA-479884USA

PATIENT
  Sex: Male
  Weight: 320 kg

DRUGS (1)
  1. GABAPENTIN. [Suspect]
     Active Substance: GABAPENTIN
     Route: 065

REACTIONS (8)
  - Pharyngeal oedema [Unknown]
  - Oedema mouth [Unknown]
  - Lip swelling [Unknown]
  - Loss of consciousness [Unknown]
  - Dyspnoea [Unknown]
  - Drug hypersensitivity [Unknown]
  - Seizure [Unknown]
  - Drug dose omission [Unknown]
